FAERS Safety Report 11175550 (Version 1)
Quarter: 2015Q2

REPORT INFORMATION
  Report Type: Spontaneous
  Country: US (occurrence: None)
  Receive Date: 20150608
  Receipt Date: 20150608
  Transmission Date: 20150821
  Serious: Yes (Other)
  Sender: FDA-Public Use
  Company Number: None

PATIENT
  Age: 24 Day
  Sex: Female
  Weight: 56.7 kg

DRUGS (1)
  1. NALTREXONE [Suspect]
     Active Substance: NALTREXONE
     Indication: ABSTAINS FROM ALCOHOL
     Dosage: 1 PILL
     Route: 048
     Dates: start: 20150605, end: 20150607

REACTIONS (8)
  - Vomiting [None]
  - Gait disturbance [None]
  - Disturbance in attention [None]
  - Dizziness [None]
  - Vision blurred [None]
  - Anxiety [None]
  - Heart rate increased [None]
  - Balance disorder [None]

NARRATIVE: CASE EVENT DATE: 20150607
